FAERS Safety Report 4847432-5 (Version None)
Quarter: 2005Q4

REPORT INFORMATION
  Report Type: 
  Country: None (occurrence: None)
  Receive Date: 20051205
  Receipt Date: 20051121
  Transmission Date: 20060501
  Serious: Yes (Hospitalization)
  Sender: FDA-Public Use
  Company Number: 2005160853

PATIENT
  Age: 57 Year
  Sex: Female

DRUGS (8)
  1. EPIRUBICIN [Suspect]
     Indication: BREAST CANCER
     Dosage: (100 MG/M2, CYCLE 1 OUT OF 4, EVERY 3 WEEKS), INTRAVENOUS
     Route: 042
     Dates: start: 20050722
  2. CYCLOPHOSPHAMIDE [Suspect]
     Indication: BREAST CANCER
     Dosage: (500 MG/M2, CYCLE 1 OUT OF 4, EVERY 3 WEEKS), INTRAVENOUS
     Route: 042
     Dates: start: 20050722
  3. FLUOROURACIL [Suspect]
     Indication: BREAST CANCER
     Dosage: (500 MG/M2, CYCLE 1 OUT OF 4, EVERY 3 WEEKS), INTRAVENOUS
     Route: 042
     Dates: start: 20050722
  4. AVELOX [Concomitant]
  5. NEUPOGEN [Concomitant]
  6. PRILOSEC [Concomitant]
  7. ZOFRAN [Concomitant]
  8. CARAFATE [Concomitant]

REACTIONS (9)
  - FEBRILE NEUTROPENIA [None]
  - FLUID OVERLOAD [None]
  - HAEMOGLOBIN DECREASED [None]
  - HYPOTENSION [None]
  - PLATELET COUNT DECREASED [None]
  - PLEURAL EFFUSION [None]
  - PNEUMONIA [None]
  - WHITE BLOOD CELL COUNT DECREASED [None]
  - WHITE BLOOD CELL COUNT INCREASED [None]
